FAERS Safety Report 6260154-1 (Version None)
Quarter: 2009Q3

REPORT INFORMATION
  Report Type: 
  Country: None (occurrence: None)
  Receive Date: 20090708
  Receipt Date: 20090629
  Transmission Date: 20100115
  Serious: Yes (Death)
  Sender: FDA-Public Use
  Company Number: A0792267A

PATIENT
  Age: 72 Year
  Sex: Male

DRUGS (4)
  1. COREG CR [Suspect]
     Indication: DRUG USE FOR UNKNOWN INDICATION
     Dosage: 40MG PER DAY
     Route: 048
     Dates: start: 20080701
  2. LANTUS [Concomitant]
  3. CRESTOR [Concomitant]
  4. DIAVAN [Concomitant]

REACTIONS (1)
  - DEATH [None]
